FAERS Safety Report 4613222-1 (Version None)
Quarter: 2005Q1

REPORT INFORMATION
  Report Type: 
  Country: None (occurrence: None)
  Receive Date: 20050315
  Receipt Date: 20050225
  Transmission Date: 20050727
  Serious: Yes (Other)
  Sender: FDA-Public Use
  Company Number: JP_050105732

PATIENT
  Age: 69 Year
  Sex: Male
  Weight: 50 kg

DRUGS (8)
  1. EVISTA [Suspect]
     Indication: OSTEOPOROSIS
     Dosage: 60 MG/1 IN THE MORNING
     Dates: start: 20041201, end: 20041221
  2. ALFAROL (ALFACALCIDOL) [Concomitant]
  3. CALCIUM LACTATE [Concomitant]
  4. MARZULENE S [Concomitant]
  5. METHYCOBAL (MECOBALAMIN) [Concomitant]
  6. ALDECIN (BECLOMETASONE DIPROPIONATE) [Concomitant]
  7. THEO-DUR [Concomitant]
  8. MUCOSOLVAN (AMBROXOL HYDROCHLORIDE) [Concomitant]

REACTIONS (3)
  - ARTHRALGIA [None]
  - DEEP VEIN THROMBOSIS [None]
  - THIRST [None]
